FAERS Safety Report 14176614 (Version 1)
Quarter: 2017Q4

REPORT INFORMATION
  Report Type: Spontaneous
  Country: US (occurrence: US)
  Receive Date: 20171109
  Receipt Date: 20171109
  Transmission Date: 20180321
  Serious: Yes (Disabling)
  Sender: FDA-Public Use
  Company Number: None

PATIENT
  Age: 71 Year
  Sex: Male
  Weight: 94.5 kg

DRUGS (7)
  1. ASPERCREME NOS [Suspect]
     Active Substance: MENTHOL\TROLAMINE SALICYLATE
     Indication: LIGAMENT SPRAIN
     Route: 061
     Dates: start: 20171027, end: 20171109
  2. METOPROPOLOL [Concomitant]
  3. COUMADIN [Concomitant]
     Active Substance: WARFARIN SODIUM
  4. ALFUZOSIN [Concomitant]
     Active Substance: ALFUZOSIN
  5. FINASTERIDE. [Concomitant]
     Active Substance: FINASTERIDE
  6. SIMIVISTATIN [Concomitant]
  7. FIBER CAPSULES [Concomitant]

REACTIONS (2)
  - International normalised ratio increased [None]
  - Product label issue [None]

NARRATIVE: CASE EVENT DATE: 20171109
